FAERS Safety Report 17370801 (Version 5)
Quarter: 2021Q3

REPORT INFORMATION
  Report Type: Spontaneous
  Country: US (occurrence: US)
  Receive Date: 20200205
  Receipt Date: 20210715
  Transmission Date: 20211014
  Serious: No
  Sender: FDA-Public Use
  Company Number: US-SA-2020SA026213

PATIENT
  Age: 56 Year
  Sex: Female

DRUGS (3)
  1. DUPIXENT [Suspect]
     Active Substance: DUPILUMAB
     Indication: DERMATITIS ATOPIC
     Dosage: 300 MG, QOW
     Route: 058
  2. DUPIXENT [Suspect]
     Active Substance: DUPILUMAB
     Dosage: 300 MG, QOW
     Route: 058
     Dates: start: 202001
  3. DUPIXENT [Suspect]
     Active Substance: DUPILUMAB
     Dosage: 300 MG, OTHER
     Route: 058
     Dates: start: 20200321

REACTIONS (9)
  - Eye disorder [Unknown]
  - Dermatitis [Unknown]
  - Rash [Unknown]
  - Erythema [Unknown]
  - Eye irritation [Unknown]
  - Product dose omission issue [Unknown]
  - Swelling face [Unknown]
  - Eye pruritus [Not Recovered/Not Resolved]
  - Pyrexia [Unknown]
